FAERS Safety Report 9462683 (Version 1)
Quarter: 2013Q3

REPORT INFORMATION
  Report Type: Spontaneous
  Country: TR (occurrence: TR)
  Receive Date: 20130816
  Receipt Date: 20130816
  Transmission Date: 20140515
  Serious: Yes (Death)
  Sender: FDA-Public Use
  Company Number: TR-ABBOTT-13X-161-1133118-00

PATIENT
  Age: 88 Year
  Sex: Female

DRUGS (2)
  1. TARKA FORTE [Suspect]
     Indication: HYPERTENSION
     Dosage: VERAPAMIL HYDROCHLORIDE 240MG/ TRANDOLAPRIL 04MG; TOTAL DAILY DOSE: 240/4 MG
     Route: 048
     Dates: start: 20130721, end: 20130723
  2. ANTIDIABETIC [Concomitant]
     Indication: DIABETES MELLITUS
     Dosage: DRUG NAMES FOR DIABETES MELLITUS TREATMENT DID NOT REPORTED
     Dates: end: 20130723

REACTIONS (5)
  - Asthenia [Fatal]
  - Dizziness [Fatal]
  - Bradycardia [Fatal]
  - Hypotension [Fatal]
  - Atrioventricular block [Fatal]
